FAERS Safety Report 14079359 (Version 2)
Quarter: 2018Q3

REPORT INFORMATION
  Report Type: Report from Study
  Country: ES (occurrence: ES)
  Receive Date: 20171012
  Receipt Date: 20180813
  Transmission Date: 20181010
  Serious: Yes (Hospitalization)
  Sender: FDA-Public Use
  Company Number: ES-ROCHE-1963669

PATIENT
  Age: 70 Year
  Sex: Male
  Weight: 71.3 kg

DRUGS (7)
  1. GEMCITABINE [Suspect]
     Active Substance: GEMCITABINE\GEMCITABINE HYDROCHLORIDE
     Indication: TRANSITIONAL CELL CARCINOMA
     Dosage: ON 06/JUL/2017, THE PATIENT RECEIVED MOST RECENT DOSE OF GEMCITABINE AT 1960 MG/M2.
     Route: 042
     Dates: start: 20170525
  2. PRIMPERAN [Concomitant]
     Active Substance: METOCLOPRAMIDE HYDROCHLORIDE
     Indication: MALAISE
     Route: 048
     Dates: start: 20170531
  3. CISPLATIN. [Suspect]
     Active Substance: CISPLATIN
     Indication: TRANSITIONAL CELL CARCINOMA
     Dosage: ON 06/JUL/2017, THE PATIENT RECEIVED MOST RECENT DOSE OF CISPLATIN AT 137 MG.
     Route: 042
     Dates: start: 20170525
  4. METFORMIN [Concomitant]
     Active Substance: METFORMIN HYDROCHLORIDE
     Indication: DIABETES MELLITUS
     Route: 048
     Dates: start: 2009
  5. NOLOTIL [Concomitant]
     Route: 048
  6. MEGEFREN [Concomitant]
     Indication: DECREASED APPETITE
     Route: 048
     Dates: start: 20170628
  7. ATEZOLIZUMAB. [Suspect]
     Active Substance: ATEZOLIZUMAB
     Indication: TRANSITIONAL CELL CARCINOMA
     Dosage: ON 06/JUN/2017, THE PATIENT RECEIVED MOST RECENT DOSE OF BLINDED ATEZOLIZUMAB.
     Route: 042
     Dates: start: 20170525

REACTIONS (1)
  - Embolism [Recovered/Resolved]

NARRATIVE: CASE EVENT DATE: 20170712
